FAERS Safety Report 10197388 (Version 1)
Quarter: 2014Q2

REPORT INFORMATION
  Report Type: Spontaneous
  Country: US (occurrence: None)
  Receive Date: 20140523
  Receipt Date: 20140523
  Transmission Date: 20141212
  Serious: Yes (Hospitalization, Disabling)
  Sender: FDA-Public Use
  Company Number: None

PATIENT
  Age: 13 Year
  Sex: Male
  Weight: 86.18 kg

DRUGS (5)
  1. SEROQUEL 750 MG [Suspect]
     Indication: BIPOLAR DISORDER
     Dosage: 2 PILLS, TWICE DAILY, TAKEN BY MOUTH
     Route: 048
     Dates: start: 20140106, end: 20140210
  2. SEROQUEL 750 MG [Suspect]
     Indication: PSYCHOTIC DISORDER
     Dosage: 2 PILLS, TWICE DAILY, TAKEN BY MOUTH
     Route: 048
     Dates: start: 20140106, end: 20140210
  3. ZYPREXA 20 MG [Suspect]
     Indication: BIPOLAR DISORDER
     Dosage: SITLL TAKING 2.75 MG, 2, TWICE DAILY, TAKEN BY MOUTH
     Route: 048
  4. ZYPREXA 20 MG [Suspect]
     Indication: WEIGHT INCREASED
     Dosage: SITLL TAKING 2.75 MG, 2, TWICE DAILY, TAKEN BY MOUTH
     Route: 048
  5. ZYPREXA 20 MG [Suspect]
     Indication: SOMNOLENCE
     Dosage: SITLL TAKING 2.75 MG, 2, TWICE DAILY, TAKEN BY MOUTH
     Route: 048

REACTIONS (2)
  - Mental disorder [None]
  - Overweight [None]
